FAERS Safety Report 17953349 (Version 1)
Quarter: 2020Q2

REPORT INFORMATION
  Report Type: Report from Study
  Country: CN (occurrence: CN)
  Receive Date: 20200628
  Receipt Date: 20200628
  Transmission Date: 20200714
  Serious: Yes (Congenital Anomaly, Other)
  Sender: FDA-Public Use
  Company Number: CN-UCBSA-2020025410

PATIENT

DRUGS (2)
  1. LEVETIRACETAM. [Suspect]
     Active Substance: LEVETIRACETAM
     Indication: SEIZURE
     Dosage: 10 MILLIGRAM/KILOGRAM, 2X/DAY (BID)
     Route: 064
  2. LEVETIRACETAM. [Suspect]
     Active Substance: LEVETIRACETAM
     Dosage: ONE DOSE WAS INCREASED ONCE A WEEK TO MAKE AT 1800+/-200 MG/KG
     Route: 064

REACTIONS (5)
  - Maternal exposure before pregnancy [Unknown]
  - Congenital anomaly [Unknown]
  - Premature baby [Unknown]
  - Low birth weight baby [Unknown]
  - Maternal exposure during breast feeding [Unknown]
